FAERS Safety Report 8346146-7 (Version None)
Quarter: 2012Q2

REPORT INFORMATION
  Report Type: 
  Country: None (occurrence: None)
  Receive Date: 20120507
  Receipt Date: 20120426
  Transmission Date: 20120825
  Serious: Yes (Death)
  Sender: FDA-Public Use
  Company Number: UTC-018220

PATIENT
  Age: 53 Year
  Sex: Male
  Weight: 65.45 kg

DRUGS (4)
  1. DIURETICS (DIURETICS) [Concomitant]
  2. PLAVIX [Concomitant]
  3. TYVASO [Suspect]
     Indication: PULMONARY HYPERTENSION
     Dosage: 144 MCG (36 MCG, 4 IN 1 D), INHALATION
     Route: 055
     Dates: start: 20120306
  4. REVATIO [Concomitant]

REACTIONS (1)
  - DEATH [None]
